FAERS Safety Report 6880807-1 (Version None)
Quarter: 2010Q3

REPORT INFORMATION
  Report Type: 
  Country: None (occurrence: None)
  Receive Date: 20100728
  Receipt Date: 20100721
  Transmission Date: 20110219
  Serious: Yes (Hospitalization)
  Sender: FDA-Public Use
  Company Number: CHPA2010CA11922

PATIENT
  Age: 50 Year
  Sex: Female
  Weight: 74.83 kg

DRUGS (10)
  1. THRIVE LOZENGE 2MG (NCH) [Suspect]
     Indication: SMOKING CESSATION THERAPY
     Dosage: 20 MG, QD
     Route: 048
     Dates: start: 20100101
  2. THRIVE LOZENGE 2MG (NCH) [Suspect]
     Dosage: 10 MG, QD
     Route: 048
  3. THRIVE LOZENGE 2MG (NCH) [Suspect]
     Dosage: 2 MG, QD
     Route: 048
  4. THRIVE 2 MG [Suspect]
     Indication: SMOKING CESSATION THERAPY
     Dosage: 20 MG, QD
     Route: 048
     Dates: start: 20100101
  5. THRIVE 2 MG [Suspect]
     Dosage: 2 MG, QD
     Route: 048
  6. DIVALPROEX SODIUM [Concomitant]
     Indication: MOOD ALTERED
  7. QUETIAPINE [Concomitant]
     Indication: PSYCHOTIC BEHAVIOUR
  8. PROPRANOLOL [Concomitant]
  9. RANITIDINE [Concomitant]
     Indication: DYSPEPSIA
  10. CLOZAPINE [Concomitant]

REACTIONS (11)
  - ANXIETY [None]
  - APATHY [None]
  - DIZZINESS [None]
  - FEAR [None]
  - FEELING ABNORMAL [None]
  - NICOTINE DEPENDENCE [None]
  - OVERDOSE [None]
  - PSYCHOTIC DISORDER [None]
  - SOMNOLENCE [None]
  - STRESS [None]
  - TREATMENT NONCOMPLIANCE [None]
